FAERS Safety Report 13470176 (Version 1)
Quarter: 2017Q2

REPORT INFORMATION
  Report Type: Spontaneous
  Country: US (occurrence: US)
  Receive Date: 20170423
  Receipt Date: 20170423
  Transmission Date: 20170830
  Serious: Yes (Other)
  Sender: FDA-Public Use
  Company Number: US-BEH-2017079758

PATIENT
  Sex: Female
  Weight: 57.6 kg

DRUGS (35)
  1. RANITIDINE. [Concomitant]
     Active Substance: RANITIDINE
  2. ACETHYL CYSTEINE [Concomitant]
  3. ACETAMINOPHEN. [Concomitant]
     Active Substance: ACETAMINOPHEN
  4. EPIPEN [Concomitant]
     Active Substance: EPINEPHRINE
  5. VITAMIN D3 [Concomitant]
     Active Substance: CHOLECALCIFEROL
  6. PROPAFENONE. [Concomitant]
     Active Substance: PROPAFENONE
  7. PROMETHAZINE [Concomitant]
     Active Substance: PROMETHAZINE\PROMETHAZINE HYDROCHLORIDE
  8. HIZENTRA [Suspect]
     Active Substance: HUMAN IMMUNOGLOBULIN G
     Indication: IMMUNODEFICIENCY COMMON VARIABLE
     Dosage: 10 G, QW
     Route: 058
     Dates: start: 20151228
  9. DIPHENHYDRAMINE. [Concomitant]
     Active Substance: DIPHENHYDRAMINE
  10. NEXIUM [Concomitant]
     Active Substance: ESOMEPRAZOLE MAGNESIUM
  11. TUMS                               /00193601/ [Concomitant]
     Active Substance: CALCIUM CARBONATE\MAGNESIUM CARBONATE\MAGNESIUM TRISILICATE
  12. PROBIOTIC                          /06395501/ [Concomitant]
     Active Substance: BIFIDOBACTERIUM ANIMALIS SUBSP. LACTIS
  13. SLIPPERY ELM [Concomitant]
     Active Substance: ELM
  14. ASPIRIN. [Concomitant]
     Active Substance: ASPIRIN
  15. LORATADINE. [Concomitant]
     Active Substance: LORATADINE
  16. ADVAIR HFA [Concomitant]
     Active Substance: FLUTICASONE PROPIONATE\SALMETEROL XINAFOATE
  17. ZAFIRLUKAST. [Concomitant]
     Active Substance: ZAFIRLUKAST
  18. COLACE [Concomitant]
     Active Substance: DOCUSATE SODIUM
  19. EPINEPHRINE. [Concomitant]
     Active Substance: EPINEPHRINE
  20. FLONASE [Concomitant]
     Active Substance: FLUTICASONE PROPIONATE
  21. CYANOCOBALAMIN. [Concomitant]
     Active Substance: CYANOCOBALAMIN
  22. FERROUS SULFATE. [Concomitant]
     Active Substance: FERROUS SULFATE
  23. ZYRTEC [Concomitant]
     Active Substance: CETIRIZINE HYDROCHLORIDE
  24. TIROSINT [Concomitant]
     Active Substance: LEVOTHYROXINE SODIUM
  25. MYRBETRIQ [Concomitant]
     Active Substance: MIRABEGRON
  26. HIZENTRA [Suspect]
     Active Substance: HUMAN IMMUNOGLOBULIN G
     Dosage: UNK
     Route: 058
  27. QVAR [Concomitant]
     Active Substance: BECLOMETHASONE DIPROPIONATE
  28. AZELASTINE [Concomitant]
     Active Substance: AZELASTINE
  29. LIOTHYRONINE SODIUM. [Concomitant]
     Active Substance: LIOTHYRONINE SODIUM
  30. MEDROL [Concomitant]
     Active Substance: METHYLPREDNISOLONE
  31. GAS-X [Concomitant]
     Active Substance: DIMETHICONE
  32. LIDOCAINE. [Concomitant]
     Active Substance: LIDOCAINE
  33. CYCLOBENZAPRINE. [Concomitant]
     Active Substance: CYCLOBENZAPRINE
  34. LEVALBUTEROL. [Concomitant]
     Active Substance: LEVALBUTEROL
  35. LIDOCAINE/PRILOCAINE [Concomitant]
     Active Substance: LIDOCAINE\PRILOCAINE

REACTIONS (3)
  - Hypertonic bladder [Unknown]
  - Dysuria [Unknown]
  - Urinary retention [Unknown]
